FAERS Safety Report 6711182-0 (Version None)
Quarter: 2010Q2

REPORT INFORMATION
  Report Type: 
  Country: None (occurrence: None)
  Receive Date: 20100504
  Receipt Date: 20100504
  Transmission Date: 20101027
  Serious: Yes (Life-Threatening, Disabling)
  Sender: FDA-Public Use
  Company Number: None

PATIENT
  Age: 66 Year
  Sex: Female
  Weight: 106.5953 kg

DRUGS (2)
  1. ZOCOR [Suspect]
     Indication: BLOOD CHOLESTEROL INCREASED
     Dosage: 80 MG TWICE A DAY
     Dates: start: 20000101, end: 20090101
  2. SIMVASTATIN [Suspect]
     Dosage: 40 MG ONCE A DAY

REACTIONS (8)
  - ABASIA [None]
  - BLOOD CREATINE PHOSPHOKINASE INCREASED [None]
  - GAIT DISTURBANCE [None]
  - LIVER DISORDER [None]
  - MUSCLE DISORDER [None]
  - MYOSITIS [None]
  - RENAL DISORDER [None]
  - VISUAL IMPAIRMENT [None]
